FAERS Safety Report 5905458-4 (Version None)
Quarter: 2008Q4

REPORT INFORMATION
  Report Type: 
  Country: None (occurrence: None)
  Receive Date: 20081001
  Receipt Date: 20081001
  Transmission Date: 20090506
  Serious: No
  Sender: FDA-Public Use
  Company Number: None

PATIENT
  Age: 79 Year
  Sex: Male

DRUGS (2)
  1. HALOPERIDOL [Suspect]
     Indication: BIPOLAR DISORDER
     Dosage: 4 MG EVERYDAY PO
     Route: 048
     Dates: start: 20071201
  2. HALOPERIDOL [Suspect]
     Indication: MANIA
     Dosage: 4 MG EVERYDAY PO
     Route: 048
     Dates: start: 20071201

REACTIONS (1)
  - PARKINSONISM [None]
